FAERS Safety Report 7880763-3 (Version None)
Quarter: 2011Q4

REPORT INFORMATION
  Report Type: 
  Country: None (occurrence: None)
  Receive Date: 20111101
  Receipt Date: 20111017
  Transmission Date: 20120403
  Serious: Yes (Other)
  Sender: FDA-Public Use
  Company Number: GB-WATSON-2011-17434

PATIENT
  Age: 44 Year
  Sex: Male

DRUGS (3)
  1. PREDNISOLONE [Suspect]
     Indication: LIVER TRANSPLANT
  2. TACROLIMUS [Suspect]
     Indication: LIVER TRANSPLANT
  3. MYCOPHENOLATE MEFETIL [Suspect]
     Indication: LIVER TRANSPLANT

REACTIONS (4)
  - RENAL IMPAIRMENT [None]
  - HEPATIC FAILURE [None]
  - TRANSPLANT REJECTION [None]
  - JAUNDICE CHOLESTATIC [None]
